FAERS Safety Report 8613602-3 (Version None)
Quarter: 2012Q3

REPORT INFORMATION
  Report Type: 
  Country: None (occurrence: None)
  Receive Date: 20120823
  Receipt Date: 20120808
  Transmission Date: 20120928
  Serious: Yes (Other)
  Sender: FDA-Public Use
  Company Number: JP-009507513-1112USA00526

PATIENT

DRUGS (32)
  1. EMEND [Suspect]
     Dosage: 80 MG, QD
     Route: 048
     Dates: start: 20101027, end: 20101028
  2. EMEND [Suspect]
     Dosage: 125 MG, QD
     Route: 048
     Dates: start: 20101207, end: 20101207
  3. EPIRUBICIN HYDROCHLORIDE [Suspect]
     Indication: BREAST CANCER
     Dosage: |100 MG, ONCE
     Route: 042
     Dates: start: 20100929, end: 20100929
  4. EPIRUBICIN HYDROCHLORIDE [Suspect]
     Dosage: 100 MG, QD
     Route: 042
     Dates: start: 20101207, end: 20101207
  5. EMEND [Suspect]
     Indication: PROPHYLAXIS OF NAUSEA AND VOMITING
     Dosage: 125 MG, ONCE
     Route: 048
     Dates: start: 20100929, end: 20100929
  6. EMEND [Suspect]
     Dosage: 125 MG, QD
     Route: 048
     Dates: start: 20101026, end: 20101026
  7. CYCLOPHOSPHAMIDE [Suspect]
     Dosage: 700 MG, QD
     Route: 042
     Dates: start: 20101026, end: 20101026
  8. GRANISETRON HYDROCHLORIDE [Concomitant]
     Dosage: UNK
     Dates: start: 20101116, end: 20101116
  9. DEXAMETHASONE SODIUM PHOSPHATE [Concomitant]
     Dates: start: 20101207, end: 20101207
  10. MUCOSTA [Concomitant]
     Dosage: UNK
     Dates: start: 20101026, end: 20101101
  11. CYCLOPHOSPHAMIDE [Suspect]
     Dosage: 700 MG, QD
     Route: 042
     Dates: start: 20101207, end: 20101207
  12. DECADRON PHOSPHATE [Concomitant]
     Dosage: UNK
     Dates: start: 20101117, end: 20101119
  13. DEXAMETHASONE SODIUM PHOSPHATE [Concomitant]
     Dosage: UNK
     Dates: start: 20101116, end: 20101116
  14. MUCOSTA [Concomitant]
     Dosage: UNK
     Dates: start: 20101116, end: 20101122
  15. EMEND [Suspect]
     Dosage: 80 MG, QD
     Route: 048
     Dates: start: 20100930, end: 20101001
  16. EMEND [Suspect]
     Dosage: 80 MG, QD
     Route: 048
     Dates: start: 20101208, end: 20101209
  17. DECADRON PHOSPHATE [Concomitant]
     Dosage: UNK
     Dates: start: 20101027, end: 20101029
  18. GRANISETRON HYDROCHLORIDE [Concomitant]
     Dosage: UNK
     Dates: start: 20101026, end: 20101026
  19. MUCOSTA [Concomitant]
     Dates: start: 20100929, end: 20101005
  20. MUCOSTA [Concomitant]
     Dosage: UNK
     Dates: start: 20101207, end: 20101213
  21. EPIRUBICIN HYDROCHLORIDE [Suspect]
     Dosage: 100 MG, QD
     Route: 042
     Dates: start: 20101026, end: 20101026
  22. GRANISETRON HYDROCHLORIDE [Concomitant]
     Dosage: UNK
     Dates: start: 20101207, end: 20101207
  23. EMEND [Suspect]
     Dosage: 80 MG, QD
     Route: 048
     Dates: start: 20101117, end: 20101118
  24. CYCLOPHOSPHAMIDE [Suspect]
     Dosage: 700 MG, QD
     Route: 042
     Dates: start: 20101116, end: 20101116
  25. DECADRON PHOSPHATE [Concomitant]
     Dosage: UNK, ONCE
     Dates: start: 20100930, end: 20101002
  26. DEXAMETHASONE SODIUM PHOSPHATE [Concomitant]
     Dosage: UNK
     Dates: start: 20101026, end: 20101026
  27. GRANISETRON HYDROCHLORIDE [Concomitant]
     Dosage: UNK, ONCE
     Dates: start: 20100929, end: 20100929
  28. EMEND [Suspect]
     Dosage: 125 MG, QD
     Route: 048
     Dates: start: 20101116, end: 20101116
  29. EPIRUBICIN HYDROCHLORIDE [Suspect]
     Dosage: 100 MG, QD
     Route: 042
     Dates: start: 20101116, end: 20101116
  30. CYCLOPHOSPHAMIDE [Suspect]
     Indication: BREAST CANCER
     Dosage: 700 MG, ONCE
     Route: 042
     Dates: start: 20100929, end: 20101029
  31. DECADRON PHOSPHATE [Concomitant]
     Dates: start: 20101208, end: 20101210
  32. DEXAMETHASONE SODIUM PHOSPHATE [Concomitant]
     Dosage: UNK, ONCE
     Dates: start: 20100929, end: 20100929

REACTIONS (6)
  - FEBRILE NEUTROPENIA [None]
  - CONSTIPATION [None]
  - ANAEMIA [None]
  - NEUTROPHIL COUNT DECREASED [None]
  - STOMATITIS [None]
  - WHITE BLOOD CELL COUNT DECREASED [None]
